FAERS Safety Report 13502383 (Version 1)
Quarter: 2017Q2

REPORT INFORMATION
  Report Type: Report from Study
  Country: AU (occurrence: AU)
  Receive Date: 20170502
  Receipt Date: 20170502
  Transmission Date: 20170830
  Serious: Yes (Hospitalization, Other)
  Sender: FDA-Public Use
  Company Number: PHHY2016AU138491

PATIENT
  Sex: Female

DRUGS (1)
  1. SANDOSTATIN LAR DEPOT [Suspect]
     Active Substance: OCTREOTIDE ACETATE
     Indication: CARCINOID SYNDROME
     Dosage: 30 MG, UNK
     Route: 030

REACTIONS (7)
  - Skin cancer [Unknown]
  - Wound decomposition [Unknown]
  - Second primary malignancy [Recovering/Resolving]
  - Thyroid disorder [Unknown]
  - Fatigue [Unknown]
  - Malignant melanoma [Recovering/Resolving]
  - Malaise [Recovering/Resolving]
